FAERS Safety Report 5259642-6 (Version None)
Quarter: 2007Q1

REPORT INFORMATION
  Report Type: 
  Country: None (occurrence: None)
  Receive Date: 20070307
  Receipt Date: 20070307
  Transmission Date: 20070707
  Serious: No
  Sender: FDA-Public Use
  Company Number: None

PATIENT
  Age: 48 Year
  Sex: Female
  Weight: 81.6475 kg

DRUGS (1)
  1. TAMOXIFEN CITRATE [Suspect]
     Indication: NEOPLASM PROPHYLAXIS
     Dosage: 20 MG DAILY PO
     Route: 048
     Dates: start: 20041201, end: 20060801

REACTIONS (7)
  - ENDOMETRIAL HYPERPLASIA [None]
  - HEPATIC STEATOSIS [None]
  - HYPERTRIGLYCERIDAEMIA [None]
  - MENOPAUSE [None]
  - UTERINE CYST [None]
  - UTERINE LEIOMYOMA [None]
  - VAGINAL DISCHARGE [None]
